FAERS Safety Report 7355795-4 (Version None)
Quarter: 2011Q1

REPORT INFORMATION
  Report Type: 
  Country: None (occurrence: None)
  Receive Date: 20110316
  Receipt Date: 20110304
  Transmission Date: 20110831
  Serious: Yes (Hospitalization)
  Sender: FDA-Public Use
  Company Number: US-US-EMD SERONO, INC.-230130M10USA

PATIENT
  Sex: Male
  Weight: 83 kg

DRUGS (13)
  1. REBIF [Suspect]
     Indication: MULTIPLE SCLEROSIS
     Route: 058
     Dates: start: 20060911, end: 20100127
  2. TOPROL-XL [Concomitant]
     Route: 065
  3. ALBUTEROL [Concomitant]
     Route: 065
  4. LISINOPRIL [Concomitant]
     Route: 065
  5. COLACE [Concomitant]
     Route: 065
  6. HYDROCHLOROTHIAZIDE [Concomitant]
     Route: 065
  7. AMITRIPTYLINE [Concomitant]
     Route: 065
     Dates: start: 20080519
  8. DEPAKOTE [Concomitant]
     Route: 065
     Dates: start: 20070406
  9. WELLBUTRIN SR [Concomitant]
     Route: 065
  10. LASIX [Concomitant]
     Route: 065
     Dates: start: 20090623
  11. VALIUM [Concomitant]
     Indication: MUSCLE SPASMS
     Route: 065
     Dates: start: 20070810
  12. VERAPAMIL EXTENDED-RELEASE [Concomitant]
     Route: 065
  13. PROLIXIN [Concomitant]
     Route: 065
     Dates: start: 20090716

REACTIONS (1)
  - LUNG NEOPLASM MALIGNANT [None]
